FAERS Safety Report 20011508 (Version 1)
Quarter: 2021Q4

REPORT INFORMATION
  Report Type: Spontaneous
  Country: US (occurrence: US)
  Receive Date: 20211029
  Receipt Date: 20211029
  Transmission Date: 20220303
  Serious: No
  Sender: FDA-Public Use
  Company Number: US-AJANTA PHARMA USA INC.-2121143

PATIENT
  Age: 49 Year
  Sex: Female
  Weight: 118.18 kg

DRUGS (1)
  1. ZOLMITRIPTAN [Suspect]
     Active Substance: ZOLMITRIPTAN
     Indication: Migraine

REACTIONS (1)
  - Drug ineffective [Recovered/Resolved]
